FAERS Safety Report 7270845-1 (Version None)
Quarter: 2011Q1

REPORT INFORMATION
  Report Type: 
  Country: None (occurrence: None)
  Receive Date: 20110125
  Receipt Date: 20110125
  Transmission Date: 20110831
  Serious: Yes (Hospitalization)
  Sender: FDA-Public Use
  Company Number: None

PATIENT
  Sex: Female
  Weight: 58 kg

DRUGS (4)
  1. AMPYRA [Suspect]
     Indication: MULTIPLE SCLEROSIS
     Dosage: 10 MG. BID PO
     Route: 048
     Dates: start: 20110115, end: 20110119
  2. TYSABRI [Concomitant]
  3. ZOLOFT [Concomitant]
  4. BROMOCRIPTIN [Concomitant]

REACTIONS (1)
  - GRAND MAL CONVULSION [None]
